FAERS Safety Report 10312982 (Version 1)
Quarter: 2014Q3

REPORT INFORMATION
  Report Type: Spontaneous
  Country: FR (occurrence: None)
  Receive Date: 20140716
  Receipt Date: 20140716
  Transmission Date: 20150326
  Serious: Yes (Hospitalization)
  Sender: FDA-Public Use
  Company Number: AG-2014-003083

PATIENT
  Age: 84 Year
  Sex: Female

DRUGS (2)
  1. ARIXTRA [Suspect]
     Active Substance: FONDAPARINUX SODIUM
     Indication: PRODUCT USED FOR UNKNOWN INDICATION
     Dates: start: 20131017, end: 20131025
  2. PREVISCAN ( FLUINDIONE) (UNKNOWN) [Concomitant]

REACTIONS (5)
  - Bradycardia [None]
  - Medication error [None]
  - Skin necrosis [None]
  - Haematoma [None]
  - Ecchymosis [None]

NARRATIVE: CASE EVENT DATE: 20131025
